FAERS Safety Report 7652966-4 (Version None)
Quarter: 2011Q3

REPORT INFORMATION
  Report Type: 
  Country: None (occurrence: None)
  Receive Date: 20110803
  Receipt Date: 20110731
  Transmission Date: 20111222
  Serious: No
  Sender: FDA-Public Use
  Company Number: SI-ROCHE-769141

PATIENT
  Sex: Female

DRUGS (1)
  1. AVASTIN [Suspect]
     Dosage: ROUTE, DOSE AND FREQUENCY WAS NOT REPORTED
     Route: 065

REACTIONS (1)
  - EPISTAXIS [None]
